FAERS Safety Report 6889619-6 (Version None)
Quarter: 2010Q3

REPORT INFORMATION
  Report Type: 
  Country: None (occurrence: None)
  Receive Date: 20100730
  Receipt Date: 20080407
  Transmission Date: 20110219
  Serious: No
  Sender: FDA-Public Use
  Company Number: US-PFIZER INC-2008031183

PATIENT
  Sex: Female
  Weight: 79.38 kg

DRUGS (3)
  1. LIPITOR [Suspect]
     Indication: BLOOD CHOLESTEROL INCREASED
     Dates: start: 20080201
  2. TRAVOPROST [Suspect]
     Indication: GLAUCOMA
     Dates: start: 20071101, end: 20080301
  3. DRUG, UNSPECIFIED [Concomitant]
     Indication: THYROID DISORDER

REACTIONS (2)
  - RASH [None]
  - RASH PRURITIC [None]
